FAERS Safety Report 9206691 (Version 1)
Quarter: 2013Q1

REPORT INFORMATION
  Report Type: Spontaneous
  Country: US (occurrence: None)
  Receive Date: 20120731
  Receipt Date: 20120731
  Transmission Date: 20140127
  Serious: Yes (Other)
  Sender: FDA-Public Use
  Company Number: AMAG201203012

PATIENT
  Age: 37 Year
  Sex: Female
  Weight: 83.1 kg

DRUGS (5)
  1. FERAHEME (FERUMOXYTOL) INJECTION, 510MG [Suspect]
     Dosage: IV PUSH
     Route: 042
     Dates: start: 20120302, end: 20120302
  2. ALBUTEROL INHALER (SALBUTAMOL SULFATE) [Concomitant]
  3. FLOVENT (FLUTICASONE PROPIONATE) [Concomitant]
  4. NORCO (HYDROCONDONE BITARTRATE, PARCETAMOL) [Concomitant]
  5. CALCIUM SUPPLEMENTS (CALCIUMGLUCONATE) [Concomitant]

REACTIONS (8)
  - Unresponsive to stimuli [None]
  - Hypotension [None]
  - Oxygen saturation decreased [None]
  - Defaecation urgency [None]
  - Feeling abnormal [None]
  - Pruritus generalised [None]
  - Somnolence [None]
  - Tremor [None]
